FAERS Safety Report 24700271 (Version 2)
Quarter: 2024Q4

REPORT INFORMATION
  Report Type: Spontaneous
  Country: IT (occurrence: IT)
  Receive Date: 20241205
  Receipt Date: 20241221
  Transmission Date: 20250115
  Serious: Yes (Hospitalization)
  Sender: TEVA
  Company Number: IT-TEVA-VS-3269764

PATIENT
  Age: 48 Year
  Sex: Female

DRUGS (7)
  1. FUROSEMIDE [Suspect]
     Active Substance: FUROSEMIDE
     Indication: Dilated cardiomyopathy
     Route: 065
  2. ETOPOSIDE [Suspect]
     Active Substance: ETOPOSIDE
     Indication: Hodgkin^s disease
     Dosage: AS A PART OF VEBEP REGIMEN, 12 CYCLES
     Route: 065
  3. EPIRUBICIN [Suspect]
     Active Substance: EPIRUBICIN
     Indication: Hodgkin^s disease
     Dosage: AS A PART OF VEBEP REGIMEN, 12 CYCLES
     Route: 065
  4. CANRENONE [Suspect]
     Active Substance: CANRENONE
     Indication: Dilated cardiomyopathy
     Route: 065
  5. PREDNISONE [Suspect]
     Active Substance: PREDNISONE
     Indication: Hodgkin^s disease
     Dosage: AS A PART OF VEBEP REGIMEN, 12 CYCLES
     Route: 065
  6. BLEOMYCIN [Suspect]
     Active Substance: BLEOMYCIN SULFATE
     Indication: Hodgkin^s disease
     Dosage: AS A PART OF VEBEP REGIMEN, 12 CYCLES
     Route: 065
  7. VINBLASTINE [Suspect]
     Active Substance: VINBLASTINE
     Indication: Hodgkin^s disease
     Dosage: AS A PART OF VEBEP REGIMEN, 12 CYCLES
     Route: 065

REACTIONS (4)
  - Ejection fraction decreased [Unknown]
  - Pericardial effusion [Unknown]
  - Dilated cardiomyopathy [Unknown]
  - Drug ineffective [Unknown]
